FAERS Safety Report 4445683-5 (Version None)
Quarter: 2004Q3

REPORT INFORMATION
  Report Type: 
  Country: None (occurrence: None)
  Receive Date: 20040902
  Receipt Date: 20040819
  Transmission Date: 20050211
  Serious: Yes (Life-Threatening, Disabling)
  Sender: FDA-Public Use
  Company Number: 2004-00464FE

PATIENT
  Age: 69 Year
  Sex: Male

DRUGS (3)
  1. PENTASA [Suspect]
     Indication: COLITIS ULCERATIVE
     Dosage: 1500 MG, ORALLY
     Route: 048
     Dates: start: 20040709, end: 20040802
  2. LOXOPROFEN [Concomitant]
  3. REBAMIIDE [Concomitant]

REACTIONS (2)
  - EOSINOPHILIC PNEUMONIA [None]
  - LUNG DISORDER [None]
